FAERS Safety Report 4831623-3 (Version None)
Quarter: 2005Q4

REPORT INFORMATION
  Report Type: 
  Country: None (occurrence: None)
  Receive Date: 20051116
  Receipt Date: 20051102
  Transmission Date: 20060501
  Serious: Yes (Other)
  Sender: FDA-Public Use
  Company Number: 2005146345

PATIENT
  Age: 70 Year
  Sex: Male

DRUGS (4)
  1. VIAGRA [Suspect]
     Indication: ILL-DEFINED DISORDER
     Dates: start: 20000101, end: 20000101
  2. ZANTAC [Concomitant]
  3. TOPROL (METOPROLOL) [Concomitant]
  4. DIURETICS (DIURETICS) [Concomitant]

REACTIONS (16)
  - ABDOMINAL PAIN UPPER [None]
  - ANXIETY [None]
  - DEPRESSION [None]
  - DIARRHOEA [None]
  - DYSPNOEA [None]
  - FEELING ABNORMAL [None]
  - HEAD INJURY [None]
  - HEART RATE INCREASED [None]
  - HYPERTENSION [None]
  - MEMORY IMPAIRMENT [None]
  - MUSCLE SPASMS [None]
  - NASAL CONGESTION [None]
  - NOCTURIA [None]
  - PHOTOPSIA [None]
  - PROSTATE EXAMINATION ABNORMAL [None]
  - PSYCHOTIC DISORDER [None]
